FAERS Safety Report 10593529 (Version 1)
Quarter: 2014Q4

REPORT INFORMATION
  Report Type: Report from Study
  Country: JP (occurrence: JP)
  Receive Date: 20141119
  Receipt Date: 20141119
  Transmission Date: 20150529
  Serious: Yes (Other)
  Sender: FDA-Public Use
  Company Number: JP-BRISTOL-MYERS SQUIBB COMPANY-21614482

PATIENT
  Age: 68 Year
  Sex: Female

DRUGS (9)
  1. URITOS [Concomitant]
     Active Substance: IMIDAFENACIN
  2. ELIQUIS [Concomitant]
     Active Substance: APIXABAN
  3. TAKEPRON [Concomitant]
     Active Substance: LANSOPRAZOLE
  4. AIMIX [Concomitant]
     Active Substance: AMLODIPINE BESYLATE\IRBESARTAN
  5. CARDENALIN [Concomitant]
     Active Substance: DOXAZOSIN MESYLATE
  6. ONGLYZA [Suspect]
     Active Substance: SAXAGLIPTIN HYDROCHLORIDE
     Indication: TYPE 2 DIABETES MELLITUS
     Dosage: 5 MG, QD
     Route: 048
     Dates: start: 20140203
  7. MAINTATE [Concomitant]
     Active Substance: BISOPROLOL FUMARATE
  8. METGLUCO [Concomitant]
     Active Substance: METFORMIN HYDROCHLORIDE
  9. FLUITRAN [Concomitant]
     Active Substance: TRICHLORMETHIAZIDE

REACTIONS (2)
  - Dizziness [Recovering/Resolving]
  - Atrial fibrillation [Recovering/Resolving]

NARRATIVE: CASE EVENT DATE: 20140524
